FAERS Safety Report 15736193 (Version 2)
Quarter: 2019Q1

REPORT INFORMATION
  Report Type: Other
  Country: GR (occurrence: GR)
  Receive Date: 20181218
  Receipt Date: 20190207
  Transmission Date: 20190417
  Serious: Yes (Other)
  Sender: FDA-Public Use
  Company Number: GR-RARE DISEASE THERAPEUTICS, INC.-2060328

PATIENT
  Age: 18 Year
  Sex: Female

DRUGS (8)
  1. DAUNORUBICIN HYDROCHLORIDE. [Suspect]
     Active Substance: DAUNORUBICIN HYDROCHLORIDE
     Route: 065
  2. PREDNISONE. [Suspect]
     Active Substance: PREDNISONE
     Route: 065
  3. CYCLOPHOSPHAMIDE. [Suspect]
     Active Substance: CYCLOPHOSPHAMIDE
     Route: 065
  4. ASPARAGINASE [Suspect]
     Active Substance: ASPARAGINASE
     Route: 065
  5. PURIXAN [Suspect]
     Active Substance: MERCAPTOPURINE
     Indication: ACUTE LYMPHOCYTIC LEUKAEMIA
     Route: 065
  6. METHOTREXATE SODIUM. [Suspect]
     Active Substance: METHOTREXATE SODIUM
     Route: 065
  7. VINCRISTINE SULFATE. [Suspect]
     Active Substance: VINCRISTINE SULFATE
     Route: 065
  8. CYTARABINE. [Suspect]
     Active Substance: CYTARABINE
     Route: 065

REACTIONS (14)
  - Oliguria [Recovered/Resolved]
  - Mucosal erosion [Unknown]
  - Hyperlipidaemia [Unknown]
  - Hepatotoxicity [Unknown]
  - Diarrhoea [Unknown]
  - Vomiting [Unknown]
  - Thrombocytopenia [Unknown]
  - Oedematous kidney [Recovered/Resolved]
  - Ileus paralytic [Unknown]
  - Pancreatitis [Unknown]
  - Blister [Unknown]
  - Abdominal discomfort [Unknown]
  - Rash generalised [Unknown]
  - Leukopenia [Unknown]
